FAERS Safety Report 17172577 (Version 1)
Quarter: 2019Q4

REPORT INFORMATION
  Report Type: Spontaneous
  Country: US (occurrence: US)
  Receive Date: 20191218
  Receipt Date: 20191218
  Transmission Date: 20200122
  Serious: Yes (Hospitalization)
  Sender: FDA-Public Use
  Company Number: None

PATIENT
  Age: 90 Year
  Sex: Female
  Weight: 62.2 kg

DRUGS (3)
  1. CARBAMAZEPINE. [Suspect]
     Active Substance: CARBAMAZEPINE
  2. APIXABAN [Suspect]
     Active Substance: APIXABAN
  3. ELIQUIS [Concomitant]
     Active Substance: APIXABAN
     Dates: start: 20190410, end: 20190917

REACTIONS (3)
  - Inhibitory drug interaction [None]
  - Deep vein thrombosis [None]
  - Coagulation time shortened [None]

NARRATIVE: CASE EVENT DATE: 20190817
